FAERS Safety Report 7226942-X (Version None)
Quarter: 2011Q1

REPORT INFORMATION
  Report Type: 
  Country: None (occurrence: None)
  Receive Date: 20110114
  Receipt Date: 20100225
  Transmission Date: 20110831
  Serious: No
  Sender: FDA-Public Use
  Company Number: US-PFIZER INC-2010025577

PATIENT
  Sex: Female
  Weight: 81.6 kg

DRUGS (2)
  1. SOMAVERT [Suspect]
     Indication: ACROMEGALY
     Dosage: 10 MG, ALTERNATE DAY
     Route: 058
     Dates: start: 20100217
  2. KLONOPIN [Concomitant]
     Dosage: ONE QUARTER, UNK

REACTIONS (4)
  - INJECTION SITE PAIN [None]
  - NASOPHARYNGITIS [None]
  - CHILLS [None]
  - MENSTRUAL DISORDER [None]
